FAERS Safety Report 6053905-2 (Version None)
Quarter: 2009Q1

REPORT INFORMATION
  Report Type: 
  Country: None (occurrence: None)
  Receive Date: 20090127
  Receipt Date: 20090114
  Transmission Date: 20090719
  Serious: Yes (Hospitalization)
  Sender: FDA-Public Use
  Company Number: JP-PFIZER INC-2008071635

PATIENT
  Sex: Female
  Weight: 64 kg

DRUGS (5)
  1. SUNITINIB MALATE [Suspect]
     Indication: BREAST CANCER
     Route: 048
     Dates: start: 20080715, end: 20080730
  2. SUNITINIB MALATE [Suspect]
     Route: 048
     Dates: start: 20080805, end: 20080812
  3. SUNITINIB MALATE [Suspect]
     Route: 048
     Dates: start: 20080819, end: 20080825
  4. LOXOPROFEN SODIUM [Suspect]
     Dosage: 60MG AS NEEDED
     Route: 048
  5. LEVOTHYROXINE SODIUM [Concomitant]
     Indication: HYPOTHYROIDISM
     Route: 048
     Dates: start: 20080624

REACTIONS (1)
  - FATIGUE [None]
